FAERS Safety Report 12292348 (Version 1)
Quarter: 2016Q2

REPORT INFORMATION
  Report Type: Report from Study
  Country: US (occurrence: US)
  Receive Date: 20160421
  Receipt Date: 20160421
  Transmission Date: 20160815
  Serious: No
  Sender: FDA-Public Use
  Company Number: US-AMGEN-USASL2016011043

PATIENT
  Age: 60 Year
  Sex: Male

DRUGS (1)
  1. REPATHA [Suspect]
     Active Substance: EVOLOCUMAB
     Indication: DYSLIPIDAEMIA
     Dosage: 140 MG, Q2MO
     Route: 065
     Dates: start: 201510

REACTIONS (5)
  - Respiratory tract congestion [Unknown]
  - Dyspnoea [Unknown]
  - Influenza like illness [Unknown]
  - Low density lipoprotein decreased [Unknown]
  - Respiratory disorder [Unknown]
